FAERS Safety Report 25126746 (Version 2)
Quarter: 2025Q1

REPORT INFORMATION
  Report Type: Spontaneous
  Country: US (occurrence: US)
  Receive Date: 20250327
  Receipt Date: 20250327
  Transmission Date: 20250409
  Serious: No
  Sender: SANDOZ
  Company Number: US-SANDOZ-SDZ2025US017845

PATIENT
  Sex: Female

DRUGS (1)
  1. ALBUTEROL SULFATE [Suspect]
     Active Substance: ALBUTEROL SULFATE
     Indication: Dyspnoea
     Route: 065

REACTIONS (3)
  - Drug effect less than expected [Unknown]
  - Product dispensing error [Unknown]
  - Device defective [Unknown]

NARRATIVE: CASE EVENT DATE: 20250221
